FAERS Safety Report 7744577-7 (Version None)
Quarter: 2011Q3

REPORT INFORMATION
  Report Type: 
  Country: None (occurrence: None)
  Receive Date: 20110912
  Receipt Date: 20110908
  Transmission Date: 20111222
  Serious: Yes (Hospitalization, Other)
  Sender: FDA-Public Use
  Company Number: JP-PFIZER INC-2011204791

PATIENT
  Age: 46 Year
  Sex: Male
  Weight: 63 kg

DRUGS (3)
  1. VARENICLINE TARTRATE [Suspect]
     Indication: NICOTINE DEPENDENCE
     Dosage: 0.5 MG, DAILY
     Route: 048
     Dates: start: 20110712, end: 20110714
  2. VARENICLINE TARTRATE [Suspect]
     Dosage: 2 MG, DAILY
     Route: 048
     Dates: start: 20110719, end: 20110823
  3. VARENICLINE TARTRATE [Suspect]
     Dosage: 1 MG, DAILY
     Route: 048
     Dates: start: 20110715, end: 20110718

REACTIONS (1)
  - LOSS OF CONSCIOUSNESS [None]
